FAERS Safety Report 7319456-X (Version None)
Quarter: 2011Q1

REPORT INFORMATION
  Report Type: 
  Country: None (occurrence: None)
  Receive Date: 20110228
  Receipt Date: 20100322
  Transmission Date: 20110831
  Serious: No
  Sender: FDA-Public Use
  Company Number: A0852957A

PATIENT
  Sex: Female

DRUGS (2)
  1. LAMICTAL [Suspect]
     Dosage: 150MG PER DAY
     Route: 048
  2. LAMICTAL [Suspect]
     Dosage: 100MG PER DAY
     Route: 048

REACTIONS (2)
  - DRUG INEFFECTIVE [None]
  - RASH [None]
